FAERS Safety Report 7914397-9 (Version None)
Quarter: 2011Q4

REPORT INFORMATION
  Report Type: 
  Country: None (occurrence: None)
  Receive Date: 20111115
  Receipt Date: 20111102
  Transmission Date: 20120403
  Serious: Yes (Other)
  Sender: FDA-Public Use
  Company Number: US-ELI_LILLY_AND_COMPANY-US201111002789

PATIENT
  Sex: Female

DRUGS (4)
  1. FORTEO [Suspect]
     Dosage: 20 UG, QD
     Dates: start: 20090301, end: 20111001
  2. HYDROCHLOROTHIAZIDE [Concomitant]
     Indication: HYPERTENSION
  3. CALCIUM [Concomitant]
  4. VITAMIN D [Concomitant]

REACTIONS (7)
  - MOVEMENT DISORDER [None]
  - DRUG DOSE OMISSION [None]
  - WEIGHT DECREASED [None]
  - BLOOD POTASSIUM DECREASED [None]
  - BONE DENSITY DECREASED [None]
  - FATIGUE [None]
  - LOSS OF CONSCIOUSNESS [None]
